FAERS Safety Report 9500009 (Version 3)
Quarter: 2013Q4

REPORT INFORMATION
  Report Type: Spontaneous
  Country: US (occurrence: US)
  Receive Date: 20130905
  Receipt Date: 20131025
  Transmission Date: 20140711
  Serious: No
  Sender: FDA-Public Use
  Company Number: US-PFIZER INC-2013255722

PATIENT
  Sex: Male

DRUGS (4)
  1. LYRICA [Suspect]
     Dosage: UNK
  2. ACCUPRIL [Suspect]
     Dosage: UNK
  3. VIAGRA [Suspect]
     Dosage: UNK
  4. CALAN [Suspect]
     Dosage: UNK

REACTIONS (2)
  - Nasal congestion [Unknown]
  - Cough [Unknown]
